FAERS Safety Report 25117775 (Version 1)
Quarter: 2025Q1

REPORT INFORMATION
  Report Type: Report from Study
  Country: ES (occurrence: ES)
  Receive Date: 20250325
  Receipt Date: 20250325
  Transmission Date: 20250409
  Serious: Yes (Hospitalization)
  Sender: MYLAN
  Company Number: ES-MYLANLABS-2025M1025562

PATIENT
  Age: 68 Year
  Sex: Male

DRUGS (3)
  1. TOBI [Suspect]
     Active Substance: TOBRAMYCIN
     Indication: Serratia infection
     Dosage: 300 MILLIGRAM, BID
  2. TOBI [Suspect]
     Active Substance: TOBRAMYCIN
     Indication: Enterobacter infection
  3. TOBI [Suspect]
     Active Substance: TOBRAMYCIN
     Indication: Tracheobronchitis bacterial

REACTIONS (1)
  - Acute kidney injury [Unknown]
